FAERS Safety Report 4906592-8 (Version None)
Quarter: 2006Q1

REPORT INFORMATION
  Report Type: 
  Country: None (occurrence: None)
  Receive Date: 20060209
  Receipt Date: 20050802
  Transmission Date: 20060701
  Serious: Yes (Death, Hospitalization)
  Sender: FDA-Public Use
  Company Number: US-GLAXOSMITHKLINE-A0569793A

PATIENT
  Age: 11 Year
  Sex: Male
  Weight: 45 kg

DRUGS (1)
  1. PAXIL [Suspect]
     Indication: MENTAL DISORDER
     Dosage: 20MG PER DAY
     Route: 048
     Dates: start: 20001017

REACTIONS (11)
  - ANGER [None]
  - ASPHYXIA [None]
  - CARDIAC ARREST [None]
  - COMA [None]
  - COMPLETED SUICIDE [None]
  - ENCEPHALOPATHY [None]
  - INJURY ASPHYXIATION [None]
  - INSOMNIA [None]
  - RESPIRATORY ARREST [None]
  - SINUS TACHYCARDIA [None]
  - VOMITING [None]
